FAERS Safety Report 24236316 (Version 2)
Quarter: 2024Q3

REPORT INFORMATION
  Report Type: Spontaneous
  Country: ES (occurrence: ES)
  Receive Date: 20240822
  Receipt Date: 20240906
  Transmission Date: 20241016
  Serious: Yes (Other)
  Sender: TEVA
  Company Number: ES-TEVA-VS-3234065

PATIENT
  Age: 44 Year
  Sex: Male

DRUGS (3)
  1. CIPROFLOXACIN [Suspect]
     Active Substance: CIPROFLOXACIN
     Indication: Pseudomonas infection
     Route: 065
     Dates: start: 2022
  2. CEFADROXIL [Suspect]
     Active Substance: CEFADROXIL
     Indication: Superinfection bacterial
     Route: 065
     Dates: start: 2022
  3. MEGLUMINE ANTIMONIATE [Suspect]
     Active Substance: MEGLUMINE ANTIMONIATE
     Indication: Cutaneous leishmaniasis
     Route: 026

REACTIONS (3)
  - Therapy non-responder [Unknown]
  - Injection site pain [Recovered/Resolved]
  - Syncope [Recovered/Resolved]

NARRATIVE: CASE EVENT DATE: 20220101
